FAERS Safety Report 8450334-9 (Version None)
Quarter: 2012Q2

REPORT INFORMATION
  Report Type: 
  Country: None (occurrence: None)
  Receive Date: 20120620
  Receipt Date: 20120614
  Transmission Date: 20120825
  Serious: Yes (Hospitalization)
  Sender: FDA-Public Use
  Company Number: PHHY2012DE001993

PATIENT
  Age: 60 Year
  Sex: Male
  Weight: 94 kg

DRUGS (10)
  1. SANDIMMUNE [Suspect]
     Indication: PROPHYLAXIS AGAINST TRANSPLANT REJECTION
     Dosage: 450 MG, QD
     Route: 048
  2. VALCYTE [Concomitant]
     Indication: INFECTION PROPHYLAXIS
     Dosage: 900 MG, QD
     Route: 048
     Dates: start: 20101101, end: 20110201
  3. MYCOPHENOLIC ACID [Suspect]
     Indication: PROPHYLAXIS AGAINST TRANSPLANT REJECTION
     Dosage: 1440 MG, QD
     Route: 048
     Dates: start: 20101118
  4. COTRIM DS [Concomitant]
     Indication: INFECTION PROPHYLAXIS
     Dosage: 160MG/ 800 MG
     Route: 048
     Dates: start: 20101101, end: 20110201
  5. PREDNISONE TAB [Suspect]
     Indication: PROPHYLAXIS AGAINST TRANSPLANT REJECTION
     Dosage: 100 MG FOLLOWED BY TAPERING TO 5 MG PER DAY
     Route: 048
  6. PANTOPRAZOLE [Concomitant]
     Dosage: 40 MG, QD
     Route: 048
     Dates: start: 20101124
  7. ERGOCALCIFEROL [Concomitant]
     Dosage: 1000 MG, UNK
     Route: 048
  8. RAMIPRIL [Concomitant]
     Indication: HYPERTENSION
     Dosage: 10 MG, QD
  9. FOSAMAX [Concomitant]
     Dosage: 70 MG, QW
     Route: 048
     Dates: start: 20101124
  10. METOPROLOL TARTRATE [Concomitant]
     Indication: HYPERTENSION
     Dosage: 95 MG, UNK
     Route: 048

REACTIONS (2)
  - SEROMA [None]
  - ILEUS PARALYTIC [None]
